FAERS Safety Report 17899118 (Version 2)
Quarter: 2020Q3

REPORT INFORMATION
  Report Type: Spontaneous
  Country: US (occurrence: US)
  Receive Date: 20200616
  Receipt Date: 20200910
  Transmission Date: 20201103
  Serious: Yes (Death, Life-Threatening, Hospitalization, Other)
  Sender: FDA-Public Use
  Company Number: US-DRREDDYS-USA/USA/20/0124090

PATIENT
  Age: 43 Year
  Sex: Female

DRUGS (3)
  1. PROPOFOL INJECTABLE EMULSION [Suspect]
     Active Substance: PROPOFOL
     Indication: GENERALISED TONIC-CLONIC SEIZURE
     Dosage: WEANED OVER 12 HOURS
  2. PROPOFOL INJECTABLE EMULSION [Suspect]
     Active Substance: PROPOFOL
  3. PROPOFOL INJECTABLE EMULSION [Suspect]
     Active Substance: PROPOFOL
     Dosage: 10 MG/KG/HR

REACTIONS (4)
  - Hypotension [Fatal]
  - Electrocardiogram QRS complex prolonged [Fatal]
  - Metabolic acidosis [Fatal]
  - Propofol infusion syndrome [Fatal]
